FAERS Safety Report 8070860-4 (Version None)
Quarter: 2012Q1

REPORT INFORMATION
  Report Type: 
  Country: None (occurrence: None)
  Receive Date: 20120125
  Receipt Date: 20120120
  Transmission Date: 20120608
  Serious: Yes (Other)
  Sender: FDA-Public Use
  Company Number: JP-GLAXOSMITHKLINE-B0776986A

PATIENT
  Age: 39 Year
  Sex: Female

DRUGS (4)
  1. SYMBICORT [Concomitant]
     Indication: ASTHMA
     Dosage: 8IUAX PER DAY
     Route: 055
  2. LOXONIN [Concomitant]
     Route: 065
  3. RELENZA [Suspect]
     Indication: INFLUENZA
     Dosage: 20MG PER DAY
     Route: 055
     Dates: start: 20111230
  4. SINGULAIR [Concomitant]
     Route: 048

REACTIONS (4)
  - ASTHMA [None]
  - COUGH [None]
  - PEAK EXPIRATORY FLOW RATE DECREASED [None]
  - PRODUCTIVE COUGH [None]
